FAERS Safety Report 9732877 (Version 4)
Quarter: 2016Q3

REPORT INFORMATION
  Report Type: Spontaneous
  Country: CA (occurrence: CA)
  Receive Date: 20131205
  Receipt Date: 20160715
  Transmission Date: 20161109
  Serious: Yes (Other)
  Sender: FDA-Public Use
  Company Number: CA-BRISTOL-MYERS SQUIBB COMPANY-19864677

PATIENT
  Age: 53 Year
  Sex: Female

DRUGS (2)
  1. RITONAVIR. [Interacting]
     Active Substance: RITONAVIR
     Indication: HIV INFECTION
     Dosage: 100 MG, QD
     Route: 065
  2. TRIAMCINOLONE ACETONIDE. [Suspect]
     Active Substance: TRIAMCINOLONE ACETONIDE
     Indication: MUSCULOSKELETAL PAIN
     Dosage: 40 MG, UNK
     Route: 014

REACTIONS (2)
  - Cushing^s syndrome [Unknown]
  - Drug interaction [Unknown]
